FAERS Safety Report 10236344 (Version 1)
Quarter: 2014Q2

REPORT INFORMATION
  Report Type: Spontaneous
  Country: US (occurrence: US)
  Receive Date: 20140613
  Receipt Date: 20140613
  Transmission Date: 20141212
  Serious: No
  Sender: FDA-Public Use
  Company Number: US-GLAXOSMITHKLINE-A1042278A

PATIENT
  Age: 49 Year
  Sex: Female

DRUGS (2)
  1. TREXIMET [Suspect]
     Indication: HEADACHE
     Dosage: 1TAB AS REQUIRED
     Route: 048
     Dates: start: 20130514, end: 20130601
  2. ADVAIR [Concomitant]

REACTIONS (4)
  - Vomiting [Recovered/Resolved]
  - Diarrhoea [Recovered/Resolved]
  - Overdose [Recovered/Resolved]
  - Drug ineffective [Recovered/Resolved]
